FAERS Safety Report 6540839-X (Version None)
Quarter: 2010Q1

REPORT INFORMATION
  Report Type: 
  Country: None (occurrence: None)
  Receive Date: 20100118
  Receipt Date: 20100106
  Transmission Date: 20100710
  Serious: Yes (Other)
  Sender: FDA-Public Use
  Company Number: PHHY2009FR41349

PATIENT
  Sex: Male
  Weight: 75 kg

DRUGS (2)
  1. TEGRETOL [Suspect]
     Indication: EPILEPSY
     Dosage: 1000 TO 1200 MG DAILY
     Route: 048
     Dates: start: 19900101
  2. TEGRETOL [Suspect]
     Indication: PARTIAL SEIZURES

REACTIONS (3)
  - ASTHENOSPERMIA [None]
  - AZOOSPERMIA [None]
  - VARICOCELE [None]
